FAERS Safety Report 11353212 (Version 1)
Quarter: 2015Q3

REPORT INFORMATION
  Report Type: Spontaneous
  Country: US (occurrence: US)
  Receive Date: 20150807
  Receipt Date: 20150807
  Transmission Date: 20151125
  Serious: No
  Sender: FDA-Public Use
  Company Number: US-JNJFOC-20141019744

PATIENT
  Age: 39 Year
  Sex: Female
  Weight: 61.24 kg

DRUGS (3)
  1. MENS ROGAINE EXTRA STRENGTH [Suspect]
     Active Substance: MINOXIDIL
     Route: 061
  2. MENS ROGAINE EXTRA STRENGTH [Suspect]
     Active Substance: MINOXIDIL
     Indication: PRODUCT USED FOR UNKNOWN INDICATION
     Dosage: PATIENT USED 1/2 CAPFUL.
     Route: 061
     Dates: start: 20141017, end: 20141021
  3. METAGENICS PROBIOPLEX [Concomitant]
     Indication: ROUTINE HEALTH MAINTENANCE
     Dosage: PATIENT HAD STARTED TAKING THE DRUG SINCE TWO MONTHS.
     Route: 065

REACTIONS (3)
  - Wrong patient received medication [Unknown]
  - Feeling abnormal [Recovering/Resolving]
  - Dizziness [Recovering/Resolving]

NARRATIVE: CASE EVENT DATE: 20141017
